FAERS Safety Report 17895768 (Version 3)
Quarter: 2021Q4

REPORT INFORMATION
  Report Type: Spontaneous
  Country: US (occurrence: US)
  Receive Date: 20200615
  Receipt Date: 20211026
  Transmission Date: 20220303
  Serious: Yes (Hospitalization)
  Sender: FDA-Public Use
  Company Number: US-PFIZER INC-2016277417

PATIENT
  Age: 69 Year
  Sex: Male
  Weight: 83.91 kg

DRUGS (3)
  1. DILANTIN [Suspect]
     Active Substance: PHENYTOIN
     Indication: Epilepsy
     Dosage: 300 MG DAILY WITH ADDITIONAL 30 MG, ALTERNATE DAY
  2. DILANTIN [Suspect]
     Active Substance: PHENYTOIN
     Indication: Seizure
     Dosage: 3 OF 100 MG, 1X/DAY
     Route: 048
  3. KEPPRA [Concomitant]
     Active Substance: LEVETIRACETAM
     Dosage: 1500 MG, (500MG, SIX PILL A DAY/2X/DAY  3 IN THE MORNING AND 3 AT NIGHT)

REACTIONS (1)
  - Prostate infection [Recovered/Resolved]
